FAERS Safety Report 21202159 (Version 1)
Quarter: 2022Q3

REPORT INFORMATION
  Report Type: Spontaneous
  Country: US (occurrence: US)
  Receive Date: 20220811
  Receipt Date: 20220811
  Transmission Date: 20221026
  Serious: No
  Sender: FDA-Public Use
  Company Number: US-KYOWAKIRIN-2022BKK012599

PATIENT

DRUGS (1)
  1. CRYSVITA [Suspect]
     Active Substance: BUROSUMAB-TWZA
     Indication: Hypophosphataemic osteomalacia
     Dosage: UNK
     Route: 065

REACTIONS (4)
  - Pain [Unknown]
  - Blood phosphorus increased [Unknown]
  - Hyperparathyroidism secondary [Unknown]
  - Blood 1,25-dihydroxycholecalciferol decreased [Unknown]
